FAERS Safety Report 8242940-1 (Version None)
Quarter: 2012Q1

REPORT INFORMATION
  Report Type: 
  Country: None (occurrence: None)
  Receive Date: 20120329
  Receipt Date: 20120329
  Transmission Date: 20120608
  Serious: No
  Sender: FDA-Public Use
  Company Number: None

PATIENT
  Sex: Female
  Weight: 78.471 kg

DRUGS (4)
  1. REMICADE [Concomitant]
     Indication: RHEUMATOID ARTHRITIS
     Dosage: 400 MG
     Route: 041
     Dates: start: 20010101, end: 20110301
  2. VICODIN [Concomitant]
  3. ENBREL [Suspect]
     Indication: RHEUMATOID ARTHRITIS
     Dosage: 50.0 MG
     Route: 058
     Dates: start: 20081101, end: 20090201
  4. PREDNISONE TAB [Concomitant]

REACTIONS (2)
  - LYMPHADENITIS [None]
  - EXTRANODAL MARGINAL ZONE B-CELL LYMPHOMA (MALT TYPE) [None]
